FAERS Safety Report 23337636 (Version 2)
Quarter: 2024Q1

REPORT INFORMATION
  Report Type: Spontaneous
  Country: DE (occurrence: DE)
  Receive Date: 20231226
  Receipt Date: 20240312
  Transmission Date: 20240410
  Serious: Yes (Death, Life-Threatening, Other)
  Sender: FDA-Public Use
  Company Number: None

PATIENT
  Age: 50 Year
  Sex: Male
  Weight: 97 kg

DRUGS (32)
  1. CISPLATIN [Suspect]
     Active Substance: CISPLATIN
     Indication: Mantle cell lymphoma stage IV
     Dosage: STRENGTH: 1 MG/ML, 200MG (100MG/QM D2) IN 1000ML NACL 0.9% 07.11.2023 12:00
     Dates: start: 20231107, end: 20231108
  2. BEPANTHEN [Concomitant]
     Dosage: EYE AND NOSE OINTMENT, DAY 5-7 1 X EVERY 6 HOURS
  3. CANDESARTAN [Concomitant]
     Active Substance: CANDESARTAN
     Dosage: 4MG, 1-0-1
  4. GRANISETRON [Concomitant]
     Active Substance: GRANISETRON
     Dosage: DAY 2: 1MG IN 100ML NACL 0.9%, SHOULD BE COMPLETED 30 MIN BEFORE CISPLATIN
  5. DIMETHINDENE MALEATE [Concomitant]
     Active Substance: DIMETHINDENE MALEATE
     Dosage: DAY 1: 4MG IN 100ML NACL 0.9%; SHOULD BE COMPLETED 30MIN BEFORE RITUXIMAB
  6. APREPITANT [Concomitant]
     Active Substance: APREPITANT
     Dosage: DAY 3: INTAKE INSTRUCTIONS: 1-0-0-0
  7. ACETAMINOPHEN [Concomitant]
     Active Substance: ACETAMINOPHEN
     Dosage: DAY 1: 1000 MG 1 HOUR BEFORE RITUXIMAB ADMINISTRATION
  8. LIPEGFILGRASTIM [Concomitant]
     Active Substance: LIPEGFILGRASTIM
     Dosage: DAY 4: 6MG
     Dates: start: 20230809
  9. DEXAMETHASONE [Concomitant]
     Active Substance: DEXAMETHASONE
     Dosage: DAY 3: 40MG IN 100ML NACL 0.9%, SHOULD BE COMPLETED 30MIN BEFORE CYTARABINE
  10. IBRUTINIB [Concomitant]
     Active Substance: IBRUTINIB
     Dosage: 1-0-0
     Dates: start: 20231016, end: 20231103
  11. SULFAMETHOXAZOLE\TRIMETHOPRIM [Concomitant]
     Active Substance: SULFAMETHOXAZOLE\TRIMETHOPRIM
     Dosage: 960MG, MON, WED, FRI 1 TO 4 WEEKS AFTER THE END OF THERAPY
  12. DEXAMETHASONE SODIUM PHOSPHATE [Concomitant]
     Active Substance: DEXAMETHASONE PHOSPHATE\DEXAMETHASONE SODIUM PHOSPHATE
     Dosage: 2 X EVERY 6 HOURS DAY 3+4
  13. ENOXAPARIN [Concomitant]
     Active Substance: ENOXAPARIN
     Dosage: 0-0-1
     Dates: end: 20231109
  14. ALLOPURINOL [Concomitant]
     Active Substance: ALLOPURINOL
     Dosage: 0-0-1
  15. RITUXIMAB [Concomitant]
     Active Substance: RITUXIMAB
     Dosage: 375MG/QM D1 IN 500ML NACL0.9% FIRST DOSE: START WITH 50 MG/H FOR 1 HOUR
     Dates: start: 20231108
  16. MANNITOL [Concomitant]
     Active Substance: MANNITOL
     Dosage: 20%, DAY 3 10:00 HR: 125 ML, 22 HOURS AFTER START OF CISPLATIN INFUSION
  17. CYTARABINE [Concomitant]
     Active Substance: CYTARABINE
     Dosage: DAY 3 13:00 HR : 2000 MG/M2 IN 2502ML NACL 0.9%
  18. PREDNISOLONE [Concomitant]
     Active Substance: PREDNISOLONE
     Dosage: DAY 1: 100MG IN 100ML NACL 0.9% SHOULD BE COMPLETED 30MIN BEFORE RITUXIMAB
  19. SODIUM CHLORIDE [Concomitant]
     Active Substance: SODIUM CHLORIDE
     Dosage: 0.9%, DAY 1: 500ML NACL 0.9% START 30 MIN BEFORE RITUXIMAB, THEN CONTINUE IN
  20. DEXAMETHASONE [Concomitant]
     Active Substance: DEXAMETHASONE
     Dosage: DAY 4: 40MG IN 100ML 0.9% NACL OR P.O.
  21. DEXAMETHASONE [Concomitant]
     Active Substance: DEXAMETHASONE
     Dosage: DAY 5. 40MG IN 100ML 0.9% NACL OR P.O.
  22. DEXAMETHASONE [Concomitant]
     Active Substance: DEXAMETHASONE
     Dosage: DAY 2: 40MG IN 100ML NACL 0.9%; SHOULD BE COMPLETED 30MIN BEFORE CISPLATIN
  23. MANNITOL [Concomitant]
     Active Substance: MANNITOL
     Dosage: 20%, DAY 3: 00:00 HR 125ML, 16 HOURS AFTER STARTING CISPLATIN INFUSION
  24. MANNITOL [Concomitant]
     Active Substance: MANNITOL
     Dosage: 20%, DAY 2:125ML, SHOULD BE COMPLETED 30 MIN BEFORE CISPLATIN
  25. MANNITOL [Concomitant]
     Active Substance: MANNITOL
     Dosage: 20%, DAY 2: 125ML, 8 HOURS AFTER STARTING CISPLATIN INFUSION
  26. CYTARABINE [Concomitant]
     Active Substance: CYTARABINE
     Dosage: DAY 3, 1:00 HR: 2000 MG/M IN 250ML NACL, NEXT CYTARABINE INFUSION AT 12-?HOUR INTERVALS
  27. SODIUM CHLORIDE [Concomitant]
     Active Substance: SODIUM CHLORIDE
     Dosage: 0.9%, DAY 1: START 1000 ML 12 H BEFORE CISPLATIN, SHOULD BE COMPLETED 30 MIN
  28. SODIUM CHLORIDE [Concomitant]
     Active Substance: SODIUM CHLORIDE
     Dosage: 0.9%, DAY 2: START 3000ML 30 MIN BEFORE CISPLATIN, THEN CONTINUE IN BYPASS
  29. GRANISETRON [Concomitant]
     Active Substance: GRANISETRON
     Dosage: DAY 3, 00:30 HR: 1MG IN 100ML NACL 0.9%; SHOULD BE COMPLETED 30?MIN BEFORE CYTARABINE
  30. GRANISETRON [Concomitant]
     Active Substance: GRANISETRON
     Dosage: DAY 3 13:00 HR: 1MG IN 100ML NACL 0-9%; SHOULD BE COMPLETED 30?MIN BEFORE CYTARABINE
  31. APREPITANT [Concomitant]
     Active Substance: APREPITANT
     Dosage: DAY 2:125MG 1 HOUR BEFORE CISPLATIN
  32. APREPITANT [Concomitant]
     Active Substance: APREPITANT
     Dosage: DAY 4: 1-0-0-0 (80MG)

REACTIONS (6)
  - Erythema [Fatal]
  - Seizure [Fatal]
  - Brain injury [Fatal]
  - Hypoxia [Fatal]
  - Status epilepticus [Fatal]
  - Encephalopathy [Fatal]

NARRATIVE: CASE EVENT DATE: 20231101
